FAERS Safety Report 5505183-8 (Version None)
Quarter: 2007Q4

REPORT INFORMATION
  Report Type: 
  Country: None (occurrence: None)
  Receive Date: 20071102
  Receipt Date: 20071029
  Transmission Date: 20080405
  Serious: Yes (Hospitalization)
  Sender: FDA-Public Use
  Company Number: A0667987A

PATIENT
  Age: 75 Year
  Sex: Male

DRUGS (3)
  1. TUMS [Suspect]
     Indication: DYSPEPSIA
  2. TUMS ULTRA TABLETS, ASSORTED FRUIT [Suspect]
     Indication: DYSPEPSIA
     Route: 048
  3. NO CONCURRENT MEDICATION [Concomitant]

REACTIONS (7)
  - DEPENDENCE [None]
  - DYSPEPSIA [None]
  - DYSPNOEA [None]
  - HEART VALVE INCOMPETENCE [None]
  - INTENTIONAL DRUG MISUSE [None]
  - MALAISE [None]
  - MYOCARDIAL INFARCTION [None]
